FAERS Safety Report 6780150-5 (Version None)
Quarter: 2010Q2

REPORT INFORMATION
  Report Type: 
  Country: None (occurrence: None)
  Receive Date: 20100618
  Receipt Date: 20100609
  Transmission Date: 20101027
  Serious: Yes (Hospitalization)
  Sender: FDA-Public Use
  Company Number: CO-WYE-H15627210

PATIENT
  Sex: Male

DRUGS (5)
  1. TAZOCIN [Suspect]
     Indication: INTESTINAL OBSTRUCTION
     Dosage: 2.25 G UNKNOWN FREQUENCY
     Route: 042
     Dates: start: 20100518, end: 20100528
  2. FLUCONAZOLE [Concomitant]
     Dosage: 200 MG (UNKNOWN FREQUENCY)
     Route: 042
  3. HYDROCORTISONE [Concomitant]
     Dosage: 100 MG (UNKNOWN FREQUENCY)
     Route: 042
  4. BECLOMETHASONE DIPROPIONATE [Concomitant]
     Dosage: 250 MCG (UNKNOWN FREQUENCY)
     Route: 055
  5. CLONIDINE [Concomitant]
     Dosage: 150 MCG TABLET (UNKNOWN FREQUENCY)

REACTIONS (3)
  - PSEUDOMONAS INFECTION [None]
  - TREATMENT FAILURE [None]
  - WOUND EVISCERATION [None]
